FAERS Safety Report 4663142-1 (Version None)
Quarter: 2005Q2

REPORT INFORMATION
  Report Type: 
  Country: None (occurrence: None)
  Receive Date: 20050513
  Receipt Date: 20050502
  Transmission Date: 20051028
  Serious: Yes (Hospitalization, Other)
  Sender: FDA-Public Use
  Company Number: HQWYE673231OCT03

PATIENT
  Age: 8 Year
  Sex: Male
  Weight: 28.6 kg

DRUGS (11)
  1. RAPAMUNE [Suspect]
     Indication: IMMUNOSUPPRESSANT DRUG THERAPY
     Dosage: 3 MG 1X PER 1 DAY, ORAL
     Route: 048
     Dates: start: 20031002, end: 20031022
  2. RAPAMUNE [Suspect]
     Indication: PROPHYLAXIS AGAINST TRANSPLANT REJECTION
     Dosage: 3 MG 1X PER 1 DAY, ORAL
     Route: 048
     Dates: start: 20031002, end: 20031022
  3. MAGNESIUM GLUCONATE (MAGNESIUM GLUCONATE) [Concomitant]
  4. PREDNISONE [Concomitant]
  5. ZANTAC [Concomitant]
  6. BACTRIM [Concomitant]
  7. PROGRAF [Concomitant]
  8. LABETALOL HCL [Concomitant]
  9. NORVASC [Concomitant]
  10. ANCEF [Concomitant]
  11. PHENERGAN [Concomitant]

REACTIONS (5)
  - BLOOD CREATINE INCREASED [None]
  - COMPLICATIONS OF TRANSPLANTED KIDNEY [None]
  - RENAL ARTERY OCCLUSION [None]
  - RENAL TUBULAR NECROSIS [None]
  - RENAL VEIN OCCLUSION [None]
